FAERS Safety Report 8371989 (Version 2)
Quarter: 2013Q1

REPORT INFORMATION
  Report Type: Report from Study
  Country: US (occurrence: US)
  Receive Date: 20120129
  Receipt Date: 20130129
  Transmission Date: 20140127
  Serious: Yes (Other)
  Sender: FDA-Public Use
  Company Number: US-ABBOTT-11P-163-0871319-00

PATIENT
  Sex: Male
  Weight: 75.36 kg

DRUGS (14)
  1. HUMIRA 40 MG/ 0.8 ML PRE-FILLED SYRINGE [Suspect]
     Indication: PSORIATIC ARTHROPATHY
     Dates: start: 20090106
  2. PLAVIX [Concomitant]
     Indication: PRODUCT USED FOR UNKNOWN INDICATION
     Dates: start: 201003
  3. TOPROL XL [Concomitant]
     Indication: PRODUCT USED FOR UNKNOWN INDICATION
     Dates: start: 201003
  4. RAMIPRIL [Concomitant]
     Indication: BLOOD PRESSURE
     Route: 048
  5. VITAMINS [Concomitant]
     Indication: VITAMIN SUPPLEMENTATION
     Route: 048
  6. MAGNESIUM [Concomitant]
     Indication: PRODUCT USED FOR UNKNOWN INDICATION
  7. COQ-10 [Concomitant]
     Indication: ENZYME SUPPLEMENTATION
     Route: 048
  8. MILK THISTLE [Concomitant]
     Indication: PHYTOTHERAPY
     Route: 048
  9. VIT D3 [Concomitant]
     Indication: VITAMIN SUPPLEMENTATION
     Dosage: EVERY MORNING AND EVENING
     Route: 048
  10. ASPIRIN [Concomitant]
     Indication: PRODUCT USED FOR UNKNOWN INDICATION
  11. ALTACE [Concomitant]
     Indication: PRODUCT USED FOR UNKNOWN INDICATION
  12. RELAFIN [Concomitant]
     Indication: PRODUCT USED FOR UNKNOWN INDICATION
  13. PROTOPIC [Concomitant]
     Indication: PRODUCT USED FOR UNKNOWN INDICATION
  14. TOTACLOX [Concomitant]
     Indication: PRODUCT USED FOR UNKNOWN INDICATION

REACTIONS (3)
  - Squamous cell carcinoma of skin [Unknown]
  - Skin cancer [Recovered/Resolved]
  - Impaired healing [Recovered/Resolved]
